FAERS Safety Report 8119627-9 (Version None)
Quarter: 2012Q1

REPORT INFORMATION
  Report Type: 
  Country: None (occurrence: None)
  Receive Date: 20120207
  Receipt Date: 20120202
  Transmission Date: 20120608
  Serious: Yes (Death, Hospitalization)
  Sender: FDA-Public Use
  Company Number: PHEH2012US002959

PATIENT
  Sex: Male
  Weight: 136 kg

DRUGS (3)
  1. BETA-BLOCKER [Suspect]
  2. ACE INHIBITORS [Suspect]
  3. VALTURNA [Suspect]
     Indication: HYPERTENSION
     Dosage: 1 DF (150 MG ALIS AND 160 MG VALS), PER DAY
     Dates: start: 20111219

REACTIONS (1)
  - CARDIAC FAILURE CONGESTIVE [None]
